FAERS Safety Report 17105890 (Version 1)
Quarter: 2019Q4

REPORT INFORMATION
  Report Type: Spontaneous
  Country: US (occurrence: US)
  Receive Date: 20191203
  Receipt Date: 20191203
  Transmission Date: 20200122
  Serious: No
  Sender: FDA-Public Use
  Company Number: US-APOTEX-2019AP025594

PATIENT
  Sex: Male

DRUGS (1)
  1. TIMOLOL MALEATE OPHTHALMIC SOLUTION USP [Suspect]
     Active Substance: TIMOLOL MALEATE
     Indication: PRODUCT USED FOR UNKNOWN INDICATION
     Dosage: 1 GTT, QD (1 DROP IN EACH EYE)
     Route: 047
     Dates: start: 20191126

REACTIONS (2)
  - Product substitution issue [Unknown]
  - Eye irritation [Unknown]

NARRATIVE: CASE EVENT DATE: 20191126
